FAERS Safety Report 8337572-0 (Version None)
Quarter: 2012Q2

REPORT INFORMATION
  Report Type: 
  Country: None (occurrence: None)
  Receive Date: 20120504
  Receipt Date: 20110829
  Transmission Date: 20120825
  Serious: Yes (Other)
  Sender: FDA-Public Use
  Company Number: US-TEVA-2011004536

PATIENT
  Sex: Female
  Weight: 59.02 kg

DRUGS (1)
  1. NUVIGIL [Suspect]
     Indication: NARCOLEPSY
     Dosage: 125 MILLIGRAM;
     Route: 048
     Dates: start: 20110807, end: 20110820

REACTIONS (6)
  - BLOOD PRESSURE INCREASED [None]
  - MUSCULOSKELETAL PAIN [None]
  - DIARRHOEA [None]
  - EPISTAXIS [None]
  - HYPOAESTHESIA [None]
  - HEADACHE [None]
